FAERS Safety Report 7525246-5 (Version None)
Quarter: 2011Q2

REPORT INFORMATION
  Report Type: 
  Country: None (occurrence: None)
  Receive Date: 20110526
  Receipt Date: 20110510
  Transmission Date: 20111010
  Serious: Yes (Other)
  Sender: FDA-Public Use
  Company Number: FK201101027

PATIENT
  Age: 78 Year
  Sex: Female

DRUGS (4)
  1. ETOPOSIDE [Suspect]
     Indication: SMALL CELL LUNG CANCER METASTATIC
     Dosage: 50 MG/M2
  2. CARBOPLATIN [Suspect]
     Indication: SMALL CELL LUNG CANCER METASTATIC
     Dosage: 300 MG/M2
  3. IRINOTECAN HYDROCHLORIDE [Suspect]
     Indication: SMALL CELL LUNG CANCER METASTATIC
     Dosage: 50 MG/M2
  4. AMRUBICIN (AMRUBICIN) (AMRUBICIN) [Suspect]
     Indication: SMALL CELL LUNG CANCER METASTATIC
     Dosage: 35 MG/M2

REACTIONS (4)
  - THERAPEUTIC RESPONSE DECREASED [None]
  - THROMBOCYTOPENIA [None]
  - DIARRHOEA [None]
  - FEBRILE NEUTROPENIA [None]
